FAERS Safety Report 19016001 (Version 1)
Quarter: 2021Q1

REPORT INFORMATION
  Report Type: Spontaneous
  Country: US (occurrence: US)
  Receive Date: 20210317
  Receipt Date: 20210317
  Transmission Date: 20210420
  Serious: No
  Sender: FDA-Public Use
  Company Number: US-GLOBAL BLOOD THERAPEUTICS INC-US-GBT-20-04050

PATIENT
  Age: 38 Year
  Sex: Male

DRUGS (6)
  1. OXBRYTA [Suspect]
     Active Substance: VOXELOTOR
     Route: 048
     Dates: start: 20201201, end: 20201204
  2. OXBRYTA [Suspect]
     Active Substance: VOXELOTOR
     Route: 048
     Dates: start: 202101
  3. OXBRYTA [Suspect]
     Active Substance: VOXELOTOR
     Indication: THALASSAEMIA SICKLE CELL
     Route: 048
     Dates: start: 20201030, end: 20201119
  4. OXBRYTA [Suspect]
     Active Substance: VOXELOTOR
     Indication: PULMONARY HYPERTENSION
     Route: 048
     Dates: start: 20201124, end: 20201130
  5. OXBRYTA [Suspect]
     Active Substance: VOXELOTOR
     Route: 048
     Dates: start: 20201205, end: 202101
  6. ADEMPAS [Concomitant]
     Active Substance: RIOCIGUAT
     Indication: PRODUCT USED FOR UNKNOWN INDICATION

REACTIONS (7)
  - Rhinorrhoea [Recovered/Resolved]
  - Muscle spasms [Not Recovered/Not Resolved]
  - Nausea [Recovered/Resolved]
  - Pyrexia [Recovered/Resolved]
  - Headache [Recovered/Resolved]
  - Off label use [Unknown]
  - Diarrhoea [Recovered/Resolved]

NARRATIVE: CASE EVENT DATE: 2020
